FAERS Safety Report 23078868 (Version 1)
Quarter: 2023Q4

REPORT INFORMATION
  Report Type: Spontaneous
  Country: US (occurrence: US)
  Receive Date: 20231018
  Receipt Date: 20231018
  Transmission Date: 20240110
  Serious: Yes (Hospitalization)
  Sender: FDA-Public Use
  Company Number: ENDG23-05346

PATIENT

DRUGS (1)
  1. PREDNISONE [Suspect]
     Active Substance: PREDNISONE
     Indication: Product used for unknown indication
     Dosage: UNK UNKNOWN, UNKNOWN
     Route: 065
     Dates: start: 2023

REACTIONS (3)
  - Aphonia [Unknown]
  - Obstructive airways disorder [Unknown]
  - Cough [Unknown]

NARRATIVE: CASE EVENT DATE: 20230101
